FAERS Safety Report 11686824 (Version 4)
Quarter: 2016Q3

REPORT INFORMATION
  Report Type: Report from Study
  Country: BR (occurrence: BR)
  Receive Date: 20151030
  Receipt Date: 20160715
  Transmission Date: 20161109
  Serious: Yes (Disabling)
  Sender: FDA-Public Use
  Company Number: BR-ABBVIE-15K-020-1488731-00

PATIENT
  Age: 38 Year
  Sex: Female
  Weight: 86 kg

DRUGS (9)
  1. FOLIC ACID. [Concomitant]
     Active Substance: FOLIC ACID
     Indication: PAIN
     Route: 048
     Dates: start: 2008
  2. CALCIUM CARBONATE. [Concomitant]
     Active Substance: CALCIUM CARBONATE
     Indication: VITAMIN SUPPLEMENTATION
     Route: 048
  3. DIPYRONE [Concomitant]
     Active Substance: DIPYRONE
     Indication: PAIN
     Route: 048
  4. VITAMIN E [Concomitant]
     Active Substance: .ALPHA.-TOCOPHEROL
     Indication: PRODUCT USED FOR UNKNOWN INDICATION
     Route: 048
  5. HUMIRA [Suspect]
     Active Substance: ADALIMUMAB
     Indication: RHEUMATOID ARTHRITIS
     Route: 058
     Dates: start: 20141107, end: 20160320
  6. METHOTREXATE. [Concomitant]
     Active Substance: METHOTREXATE
     Indication: ARTHRITIS
     Route: 048
     Dates: start: 2008
  7. CALCIUM CARBONATE. [Concomitant]
     Active Substance: CALCIUM CARBONATE
     Indication: BONE DISORDER
  8. PREDNISONE. [Concomitant]
     Active Substance: PREDNISONE
     Indication: PAIN
     Route: 048
  9. OMEPRAZOLE. [Concomitant]
     Active Substance: OMEPRAZOLE
     Indication: GASTRIC DISORDER
     Route: 048

REACTIONS (20)
  - Pruritus [Not Recovered/Not Resolved]
  - Fluid intake reduced [Unknown]
  - Pain in extremity [Not Recovered/Not Resolved]
  - Head discomfort [Not Recovered/Not Resolved]
  - Visual impairment [Not Recovered/Not Resolved]
  - Dyspepsia [Not Recovered/Not Resolved]
  - Dysgeusia [Not Recovered/Not Resolved]
  - Deafness unilateral [Not Recovered/Not Resolved]
  - Erythema [Not Recovered/Not Resolved]
  - Erythema [Recovered/Resolved]
  - Gastrointestinal bacterial infection [Not Recovered/Not Resolved]
  - Asthenia [Unknown]
  - Pain in extremity [Not Recovered/Not Resolved]
  - Inadequate diet [Unknown]
  - Pruritus [Not Recovered/Not Resolved]
  - Hepatitis [Not Recovered/Not Resolved]
  - Burning sensation [Not Recovered/Not Resolved]
  - Tendonitis [Unknown]
  - Oedema peripheral [Recovered/Resolved]
  - Rash macular [Not Recovered/Not Resolved]

NARRATIVE: CASE EVENT DATE: 2015
